FAERS Safety Report 9503220 (Version 2)
Quarter: 2013Q3

REPORT INFORMATION
  Report Type: Spontaneous
  Country: HN (occurrence: HN)
  Receive Date: 20130906
  Receipt Date: 20130906
  Transmission Date: 20140515
  Serious: Yes (Other)
  Sender: FDA-Public Use
  Company Number: HN-NOVOPROD-381833

PATIENT
  Age: 31 Year
  Sex: Female

DRUGS (1)
  1. LEVEMIR FLEXPEN [Suspect]
     Indication: GESTATIONAL DIABETES
     Dosage: 16 IU, QD
     Route: 058
     Dates: start: 20130514

REACTIONS (2)
  - Complication of pregnancy [Unknown]
  - Exposure during pregnancy [Unknown]
